FAERS Safety Report 11350447 (Version 1)
Quarter: 2015Q3

REPORT INFORMATION
  Report Type: Report from Study
  Country: US (occurrence: US)
  Receive Date: 20150807
  Receipt Date: 20150807
  Transmission Date: 20151125
  Serious: Yes (Hospitalization, Disabling, Other)
  Sender: FDA-Public Use
  Company Number: US-ABBVIE-15K-163-1436753-00

PATIENT
  Age: 55 Year
  Sex: Female
  Weight: 76.7 kg

DRUGS (3)
  1. PREDNISONE. [Concomitant]
     Active Substance: PREDNISONE
     Indication: COLITIS ULCERATIVE
  2. HUMIRA [Suspect]
     Active Substance: ADALIMUMAB
     Route: 058
     Dates: start: 201507, end: 20150713
  3. HUMIRA [Suspect]
     Active Substance: ADALIMUMAB
     Indication: COLITIS ULCERATIVE
     Route: 058
     Dates: start: 20150522, end: 201507

REACTIONS (14)
  - Peripheral artery thrombosis [Recovered/Resolved]
  - Colitis ulcerative [Unknown]
  - Clostridium difficile infection [Unknown]
  - Blood albumin decreased [Unknown]
  - Haemoglobin decreased [Recovering/Resolving]
  - Paraesthesia [Unknown]
  - Hypoaesthesia [Unknown]
  - Aortic thrombosis [Unknown]
  - Pericardial effusion [Unknown]
  - Inflammatory bowel disease [Unknown]
  - Postoperative wound infection [Unknown]
  - Peripheral ischaemia [Not Recovered/Not Resolved]
  - Haematocrit decreased [Recovering/Resolving]
  - Cardiolipin antibody positive [Unknown]

NARRATIVE: CASE EVENT DATE: 201507
